FAERS Safety Report 8611797-9 (Version None)
Quarter: 2012Q3

REPORT INFORMATION
  Report Type: 
  Country: None (occurrence: None)
  Receive Date: 20120822
  Receipt Date: 20120807
  Transmission Date: 20120928
  Serious: Yes (Other)
  Sender: FDA-Public Use
  Company Number: KR-ROCHE-1099952

PATIENT
  Age: 50 Year
  Sex: Male

DRUGS (2)
  1. VANCOMYCIN [Concomitant]
  2. ROCEPHIN [Suspect]
     Indication: MENINGITIS PNEUMOCOCCAL

REACTIONS (1)
  - DRUG RESISTANCE [None]
